FAERS Safety Report 18191513 (Version 5)
Quarter: 2020Q4

REPORT INFORMATION
  Report Type: Report from Study
  Country: None (occurrence: FR)
  Receive Date: 20200824
  Receipt Date: 20201206
  Transmission Date: 20210113
  Serious: Yes (Life-Threatening, Hospitalization, Other)
  Sender: FDA-Public Use
  Company Number: FR-ABBVIE-20K-056-3535413-00

PATIENT
  Age: 7 Year
  Sex: Female

DRUGS (24)
  1. ELECTROLYTES NOS [Concomitant]
     Active Substance: ELECTROLYTES NOS
     Indication: PROPHYLAXIS
     Dosage: UNK
     Route: 042
     Dates: start: 20200706, end: 20200713
  2. ALLOPURINOL. [Concomitant]
     Active Substance: ALLOPURINOL
     Indication: PROPHYLAXIS
     Dosage: 100 MG, QD (1 IN 1 D)
     Route: 042
     Dates: start: 20200708, end: 20200713
  3. INNOHEP [Concomitant]
     Active Substance: TINZAPARIN SODIUM
     Dosage: UNK
     Route: 058
  4. VENETOCLAX. [Suspect]
     Active Substance: VENETOCLAX
     Dosage: 250 MG 1 IN 1D (TABLET ORAL SUSPENSION)
     Route: 048
     Dates: start: 20200707, end: 20200715
  5. VENETOCLAX. [Suspect]
     Active Substance: VENETOCLAX
     Dosage: 250MG, QD
     Route: 048
     Dates: start: 20200824, end: 20200902
  6. TOPOTECAN [Suspect]
     Active Substance: TOPOTECAN HYDROCHLORIDE
     Dosage: 0.75 MG/M2, QD
     Route: 042
     Dates: start: 20200730, end: 20200803
  7. VENETOCLAX. [Suspect]
     Active Substance: VENETOCLAX
     Dosage: 250 MG QD
     Route: 048
     Dates: start: 20200914, end: 20200923
  8. VENETOCLAX. [Suspect]
     Active Substance: VENETOCLAX
     Dosage: 250 MG 1 IN 1 D (TABLE ORAL SUSPENSION)
     Route: 048
     Dates: end: 20200808
  9. INNOHEP [Concomitant]
     Active Substance: TINZAPARIN SODIUM
     Dosage: UNK
     Route: 042
  10. VENETOCLAX. [Suspect]
     Active Substance: VENETOCLAX
     Indication: NEOPLASM MALIGNANT
     Dosage: 120MG 1 IN 1D (TABLET ORAL SUSPENSION)
     Route: 048
     Dates: start: 20200706, end: 20200706
  11. VENETOCLAX. [Suspect]
     Active Substance: VENETOCLAX
     Dosage: 250 MG QD
     Route: 048
     Dates: start: 20200706, end: 20200706
  12. CYCLOPHOSPHAMIDE. [Suspect]
     Active Substance: CYCLOPHOSPHAMIDE
     Dosage: 250 MG/M2, QD
     Route: 042
     Dates: start: 20200708, end: 20200712
  13. TOPOTECAN [Suspect]
     Active Substance: TOPOTECAN HYDROCHLORIDE
     Indication: NEOPLASM MALIGNANT
     Dosage: 0.75 MG/M2, QD
     Route: 042
     Dates: start: 20200708, end: 20200712
  14. VENETOCLAX. [Suspect]
     Active Substance: VENETOCLAX
     Dosage: 250 MG QD
     Route: 048
     Dates: start: 20200713, end: 20200715
  15. TOPOTECAN [Suspect]
     Active Substance: TOPOTECAN HYDROCHLORIDE
     Dosage: 250 MG/M2, QD
     Route: 065
     Dates: start: 20200708
  16. VENETOCLAX. [Suspect]
     Active Substance: VENETOCLAX
     Dosage: 250 MG QD
     Route: 048
     Dates: start: 20201007
  17. INNOHEP [Concomitant]
     Active Substance: TINZAPARIN SODIUM
     Dosage: 3000 IU, QD (1 IN 1 D)
     Route: 058
     Dates: start: 20200718, end: 20200718
  18. VENETOCLAX. [Suspect]
     Active Substance: VENETOCLAX
     Dosage: 250 MG QD
     Route: 048
     Dates: start: 20200730, end: 20200808
  19. CYCLOPHOSPHAMIDE. [Suspect]
     Active Substance: CYCLOPHOSPHAMIDE
     Indication: NEOPLASM MALIGNANT
     Dosage: 250 MG/M2, QD
     Route: 042
     Dates: start: 20200730, end: 20200803
  20. CYCLOPHOSPHAMIDE. [Suspect]
     Active Substance: CYCLOPHOSPHAMIDE
     Dosage: 0.75 MG/M2, QD
     Route: 042
     Dates: start: 20200708
  21. VENETOCLAX. [Suspect]
     Active Substance: VENETOCLAX
     Dosage: 250 MG QD
     Route: 048
     Dates: start: 20200707, end: 20200712
  22. SPASFON LYOC [Concomitant]
     Active Substance: PHLOROGLUCINOL
     Indication: ABDOMINAL PAIN
     Dosage: 160 MG ((80 MG,2 IN 1 D))
     Route: 048
     Dates: start: 20200828
  23. INNOHEP [Concomitant]
     Active Substance: TINZAPARIN SODIUM
     Indication: ANTICOAGULANT THERAPY
     Dosage: 3000 IU, QD (1 IN 1 D)
     Route: 058
     Dates: start: 20200706, end: 20200713
  24. INNOHEP [Concomitant]
     Active Substance: TINZAPARIN SODIUM
     Dosage: 3000 IU, QD (1 IN 1 D)
     Route: 058
     Dates: start: 20200717

REACTIONS (7)
  - Lymphocyte count decreased [Recovered/Resolved]
  - Febrile neutropenia [Recovered/Resolved]
  - Lymphopenia [Unknown]
  - Febrile neutropenia [Recovered/Resolved]
  - Febrile bone marrow aplasia [Recovered/Resolved]
  - Febrile neutropenia [Recovered/Resolved]
  - Pyrexia [Not Recovered/Not Resolved]

NARRATIVE: CASE EVENT DATE: 20200718
